FAERS Safety Report 19901561 (Version 1)
Quarter: 2021Q3

REPORT INFORMATION
  Report Type: Spontaneous
  Country: JP (occurrence: JP)
  Receive Date: 20210929
  Receipt Date: 20210929
  Transmission Date: 20211014
  Serious: Yes (Other)
  Sender: FDA-Public Use
  Company Number: JP-REGENERON PHARMACEUTICALS, INC.-2021-90186

PATIENT

DRUGS (13)
  1. EYLEA [Suspect]
     Active Substance: AFLIBERCEPT
     Indication: NEOVASCULAR AGE-RELATED MACULAR DEGENERATION
     Dosage: 2 MG, ONCE, LEFT EYE
     Route: 031
     Dates: start: 20200727, end: 20200727
  2. EYLEA [Suspect]
     Active Substance: AFLIBERCEPT
     Dosage: 2 MG, ONCE, LEFT EYE
     Route: 031
     Dates: start: 20210106, end: 20210106
  3. XALATAN [Concomitant]
     Active Substance: LATANOPROST
     Indication: GLAUCOMA
     Dosage: BOTH EYES, QD
     Route: 047
     Dates: start: 20141008
  4. EYLEA [Suspect]
     Active Substance: AFLIBERCEPT
     Dosage: 2 MG, ONCE, LEFT EYE
     Route: 031
     Dates: start: 20210525, end: 20210525
  5. EYLEA [Suspect]
     Active Substance: AFLIBERCEPT
     Dosage: 2 MG, ONCE, LEFT EYE
     Route: 031
     Dates: start: 20210628, end: 20210628
  6. EYLEA [Suspect]
     Active Substance: AFLIBERCEPT
     Indication: POLYPOIDAL CHOROIDAL VASCULOPATHY
     Dosage: 2 MG, ONCE, LEFT EYE
     Route: 031
     Dates: start: 20200824, end: 20200824
  7. EYLEA [Suspect]
     Active Substance: AFLIBERCEPT
     Indication: SUBRETINAL FLUID
     Dosage: 2 MG, ONCE, LEFT EYE
     Route: 031
     Dates: start: 20200928, end: 20200928
  8. EYLEA [Suspect]
     Active Substance: AFLIBERCEPT
     Dosage: 2 MG, ONCE, LEFT EYE
     Route: 031
     Dates: start: 20201130, end: 20201130
  9. EYLEA [Suspect]
     Active Substance: AFLIBERCEPT
     Dosage: 2 MG, ONCE, LEFT EYE
     Route: 031
     Dates: start: 20210906, end: 20210906
  10. EYLEA [Suspect]
     Active Substance: AFLIBERCEPT
     Dosage: 2 MG, ONCE, LEFT EYE
     Route: 031
     Dates: start: 20210208, end: 20210208
  11. DIQUAS [Concomitant]
     Active Substance: DIQUAFOSOL TETRASODIUM
     Indication: DRY EYE
     Dosage: BOTH EYES, QID
     Route: 047
     Dates: start: 20190223
  12. EYLEA [Suspect]
     Active Substance: AFLIBERCEPT
     Dosage: 2 MG, ONCE, LEFT EYE
     Route: 031
     Dates: start: 20201026, end: 20201026
  13. EYLEA [Suspect]
     Active Substance: AFLIBERCEPT
     Dosage: 2 MG, ONCE, LEFT EYE
     Route: 031
     Dates: start: 20210329, end: 20210329

REACTIONS (1)
  - Retinal haemorrhage [Unknown]

NARRATIVE: CASE EVENT DATE: 20210525
